FAERS Safety Report 4892019-1 (Version None)
Quarter: 2006Q1

REPORT INFORMATION
  Report Type: 
  Country: None (occurrence: None)
  Receive Date: 20060124
  Receipt Date: 20060113
  Transmission Date: 20060701
  Serious: Yes (Hospitalization, Other)
  Sender: FDA-Public Use
  Company Number: 2004BI002350

PATIENT
  Age: 54 Year
  Sex: Female
  Weight: 72.5755 kg

DRUGS (14)
  1. AVONEX [Suspect]
     Indication: MULTIPLE SCLEROSIS
     Dosage: 30 UG;QW;IM
     Route: 030
     Dates: start: 19990901
  2. AVONEX [Suspect]
     Indication: MULTIPLE SCLEROSIS
     Dosage: 30 UG;QW;IM
     Route: 030
  3. PROZAC [Concomitant]
  4. PRIMROSE OIL [Concomitant]
  5. BACLOFEN [Concomitant]
  6. METHYLPHENIDATE [Concomitant]
  7. MULTI-VITAMIN [Concomitant]
  8. MOTRIN [Concomitant]
  9. FLOMAX [Concomitant]
  10. CALCIUM GLUCONATE [Concomitant]
  11. LIPITOR [Concomitant]
  12. NEURONTIN [Concomitant]
  13. DITROPAN XL [Concomitant]
  14. ARICEPT [Concomitant]

REACTIONS (2)
  - BREAST CANCER FEMALE [None]
  - HYSTERECTOMY [None]
